FAERS Safety Report 13767680 (Version 1)
Quarter: 2017Q3

REPORT INFORMATION
  Report Type: Report from Study
  Country: KR (occurrence: KR)
  Receive Date: 20170719
  Receipt Date: 20170719
  Transmission Date: 20171127
  Serious: Yes (Other)
  Sender: FDA-Public Use
  Company Number: KR-ROCHE-1876617

PATIENT

DRUGS (2)
  1. IRINOTECAN [Suspect]
     Active Substance: IRINOTECAN
     Indication: GASTRIC CANCER
     Dosage: ON DAY1 AND DAY 15 FOR 90 MIN.
     Route: 042
  2. CAPECITABINE. [Suspect]
     Active Substance: CAPECITABINE
     Indication: GASTRIC CANCER
     Dosage: DOSE DIVIDED INTO TWO SESSIONS PER DAY, WAS ADMINISTERED FOR SEVEN CONSECUTIVE DAYS FROM DAYS 1 AND
     Route: 048

REACTIONS (16)
  - Neutropenia [Unknown]
  - Diarrhoea [Unknown]
  - Hepatitis [Unknown]
  - Hepatotoxicity [Unknown]
  - Fatigue [Unknown]
  - Colitis ischaemic [Unknown]
  - Thrombocytopenia [Unknown]
  - Vomiting [Unknown]
  - Palmar-plantar erythrodysaesthesia syndrome [Unknown]
  - Nausea [Unknown]
  - Mucosal inflammation [Unknown]
  - Alopecia [Unknown]
  - Intestinal perforation [Unknown]
  - Anaemia [Unknown]
  - Colitis [Unknown]
  - Infection [Unknown]
